FAERS Safety Report 7395226-1 (Version None)
Quarter: 2011Q2

REPORT INFORMATION
  Report Type: 
  Country: None (occurrence: None)
  Receive Date: 20110405
  Receipt Date: 20110325
  Transmission Date: 20111010
  Serious: Yes (Death, Other)
  Sender: FDA-Public Use
  Company Number: US-GENZYME-FLUD-1000932

PATIENT
  Age: 65 Year

DRUGS (6)
  1. BUSULFAN [Suspect]
     Indication: MYELOFIBROSIS
  2. TACROLIMUS [Concomitant]
     Indication: PROPHYLAXIS AGAINST GRAFT VERSUS HOST DISEASE
     Route: 065
  3. FLUDARA [Suspect]
     Indication: MYELOFIBROSIS
  4. BUSULFAN [Suspect]
     Indication: STEM CELL TRANSPLANT
     Dosage: UNK
     Route: 065
  5. FLUDARA [Suspect]
     Indication: STEM CELL TRANSPLANT
     Dosage: UNK
     Route: 065
  6. METHOTREXATE [Concomitant]
     Indication: PROPHYLAXIS AGAINST GRAFT VERSUS HOST DISEASE
     Route: 065

REACTIONS (2)
  - CHRONIC GRAFT VERSUS HOST DISEASE [None]
  - INFECTION [None]
